FAERS Safety Report 20360763 (Version 1)
Quarter: 2022Q1

REPORT INFORMATION
  Report Type: Spontaneous
  Country: US (occurrence: None)
  Receive Date: 20220120
  Receipt Date: 20220120
  Transmission Date: 20220423
  Serious: No
  Sender: FDA-Public Use
  Company Number: None

PATIENT
  Age: 50 Year
  Sex: Male

DRUGS (1)
  1. CAPECITABINE [Suspect]
     Active Substance: CAPECITABINE
     Dosage: OTHER QUANTITY : 500MG, 4 TABS;?FREQUENCY : TWICE A DAY;?
     Route: 048
     Dates: start: 202111, end: 202112

REACTIONS (2)
  - Cerebrovascular accident [None]
  - Post procedural complication [None]

NARRATIVE: CASE EVENT DATE: 20211217
